FAERS Safety Report 5528860-1 (Version None)
Quarter: 2007Q4

REPORT INFORMATION
  Report Type: 
  Country: None (occurrence: None)
  Receive Date: 20071113
  Receipt Date: 20070913
  Transmission Date: 20080405
  Serious: No
  Sender: FDA-Public Use
  Company Number: 200714645US

PATIENT
  Age: 54 Year
  Sex: Male
  Weight: 76.81 kg

DRUGS (9)
  1. APIDRA [Suspect]
     Indication: DIABETES MELLITUS
     Dosage: 3-10 U AC
     Dates: start: 20060801, end: 20070610
  2. APIDRA [Suspect]
     Indication: DIABETES MELLITUS
     Dosage: 3-10 U AC
     Dates: start: 20070616, end: 20070626
  3. APIDRA [Suspect]
     Indication: DIABETES MELLITUS
     Dosage: 3-10 U AC
     Dates: start: 20070729, end: 20070101
  4. OPTICLIK [Suspect]
     Indication: DIABETES MELLITUS
     Dates: start: 20060801
  5. METOPROLOL SUCCINATE (TOPROL) [Concomitant]
  6. OMEPRAZOLE (PRILOSEC /00661201/) [Concomitant]
  7. GLYBURIDE [Concomitant]
  8. MESALAZINE (CANASA) [Concomitant]
  9. AMLODIPINE (NORVASC /00972401/) [Concomitant]

REACTIONS (4)
  - ABDOMINAL PAIN UPPER [None]
  - DEFAECATION URGENCY [None]
  - DIARRHOEA [None]
  - FLATULENCE [None]
